FAERS Safety Report 8625438-8 (Version None)
Quarter: 2012Q3

REPORT INFORMATION
  Report Type: 
  Country: None (occurrence: None)
  Receive Date: 20120827
  Receipt Date: 20100918
  Transmission Date: 20120928
  Serious: Yes (Other)
  Sender: FDA-Public Use
  Company Number: CO-PFIZER INC-2012203975

PATIENT
  Age: 55 Year
  Sex: Female

DRUGS (5)
  1. OLMESARTAN MEDOXOMIL [Suspect]
     Indication: HYPERTENSION
     Dosage: 20 MG, 1X/DAY
  2. INSULIN ZINC SUSPENSION [Concomitant]
     Dosage: 40-15 IU, 2X/DAY
  3. LIPITOR [Suspect]
     Indication: DYSLIPIDAEMIA
     Dosage: 10 MG, 1X/DAY
  4. METFORMIN [Concomitant]
     Dosage: 850 MG, 1X/DAY
  5. INSULIN ZINC SUSPENSION (CRYSTALLINE) [Concomitant]
     Dosage: UNK

REACTIONS (3)
  - OBESITY [None]
  - HYPERTENSIVE EMERGENCY [None]
  - RENAL FAILURE CHRONIC [None]
